FAERS Safety Report 25571469 (Version 1)
Quarter: 2025Q3

REPORT INFORMATION
  Report Type: Report from Study
  Country: CN (occurrence: CN)
  Receive Date: 20250717
  Receipt Date: 20250717
  Transmission Date: 20251020
  Serious: Yes (Hospitalization, Other)
  Sender: ROCHE
  Company Number: CN-ROCHE-10000143323

PATIENT
  Age: 73 Year
  Sex: Female
  Weight: 60 kg

DRUGS (50)
  1. POLATUZUMAB VEDOTIN [Suspect]
     Active Substance: POLATUZUMAB VEDOTIN
     Indication: Diffuse large B-cell lymphoma
     Route: 042
     Dates: start: 20240821, end: 20240821
  2. POLATUZUMAB VEDOTIN [Suspect]
     Active Substance: POLATUZUMAB VEDOTIN
     Route: 042
     Dates: start: 20241112, end: 20241112
  3. POLATUZUMAB VEDOTIN [Suspect]
     Active Substance: POLATUZUMAB VEDOTIN
     Route: 042
     Dates: start: 20241023, end: 20241023
  4. ZUBERITAMAB [Suspect]
     Active Substance: ZUBERITAMAB
     Indication: Diffuse large B-cell lymphoma
     Route: 042
     Dates: start: 20240821, end: 20240821
  5. ZUBERITAMAB [Suspect]
     Active Substance: ZUBERITAMAB
     Route: 042
     Dates: start: 20241112, end: 20241112
  6. ZUBERITAMAB [Suspect]
     Active Substance: ZUBERITAMAB
     Route: 042
     Dates: start: 20241023, end: 20241023
  7. ZUBERITAMAB [Suspect]
     Active Substance: ZUBERITAMAB
     Route: 042
     Dates: start: 20250107, end: 20250107
  8. ZUBERITAMAB [Suspect]
     Active Substance: ZUBERITAMAB
     Route: 042
     Dates: start: 20241218, end: 20241218
  9. PREDNISONE [Suspect]
     Active Substance: PREDNISONE
     Indication: Diffuse large B-cell lymphoma
     Route: 048
     Dates: start: 20240821, end: 20240825
  10. PREDNISONE [Suspect]
     Active Substance: PREDNISONE
     Route: 048
     Dates: start: 20241112, end: 20241116
  11. PREDNISONE [Suspect]
     Active Substance: PREDNISONE
     Route: 048
     Dates: start: 20241023, end: 20241027
  12. CYCLOPHOSPHAMIDE [Suspect]
     Active Substance: CYCLOPHOSPHAMIDE
     Indication: Diffuse large B-cell lymphoma
     Route: 042
     Dates: start: 20240822, end: 20240822
  13. CYCLOPHOSPHAMIDE [Suspect]
     Active Substance: CYCLOPHOSPHAMIDE
     Route: 042
     Dates: start: 20241113, end: 20241113
  14. CYCLOPHOSPHAMIDE [Suspect]
     Active Substance: CYCLOPHOSPHAMIDE
     Route: 042
     Dates: start: 20241024, end: 20241024
  15. ZANUBRUTINIB [Suspect]
     Active Substance: ZANUBRUTINIB
     Indication: Diffuse large B-cell lymphoma
     Dosage: THERAPY START DATE 24-OCT-2024
     Route: 048
     Dates: end: 20241106
  16. ZANUBRUTINIB [Suspect]
     Active Substance: ZANUBRUTINIB
     Route: 048
     Dates: start: 20241112, end: 20241126
  17. ZANUBRUTINIB [Suspect]
     Active Substance: ZANUBRUTINIB
     Route: 048
     Dates: start: 20241218, end: 20250106
  18. DOXORUBICIN HYDROCHLORIDE [Suspect]
     Active Substance: DOXORUBICIN HYDROCHLORIDE
     Indication: Diffuse large B-cell lymphoma
     Route: 042
     Dates: start: 20240822, end: 20240822
  19. DOXORUBICIN HYDROCHLORIDE [Suspect]
     Active Substance: DOXORUBICIN HYDROCHLORIDE
     Route: 042
     Dates: start: 20241024, end: 20241024
  20. DOXORUBICIN HYDROCHLORIDE [Suspect]
     Active Substance: DOXORUBICIN HYDROCHLORIDE
     Route: 042
     Dates: start: 20241113, end: 20241113
  21. ENTECAVIR [Concomitant]
     Active Substance: ENTECAVIR
     Indication: Prophylaxis
     Route: 048
     Dates: start: 20241113, end: 20241114
  22. ENTECAVIR [Concomitant]
     Active Substance: ENTECAVIR
     Route: 048
     Dates: start: 20240930, end: 20241013
  23. ENTECAVIR [Concomitant]
     Active Substance: ENTECAVIR
     Route: 048
     Dates: start: 20241023, end: 20241105
  24. ENTECAVIR [Concomitant]
     Active Substance: ENTECAVIR
     Route: 048
     Dates: start: 20241218, end: 20250101
  25. ENTECAVIR [Concomitant]
     Active Substance: ENTECAVIR
     Route: 048
     Dates: start: 20240107, end: 20250107
  26. METHYLPREDNISOLONE [Concomitant]
     Active Substance: METHYLPREDNISOLONE
     Indication: Prophylaxis
     Route: 042
     Dates: start: 20240930, end: 20240930
  27. TROPISETRON [Concomitant]
     Active Substance: TROPISETRON
     Indication: Prophylaxis
     Route: 042
     Dates: start: 20241024, end: 20241024
  28. TROPISETRON [Concomitant]
     Active Substance: TROPISETRON
     Route: 042
     Dates: start: 20241001, end: 20241001
  29. DEXAMETHASONE SODIUM PHOSPHATE [Concomitant]
     Active Substance: DEXAMETHASONE SODIUM PHOSPHATE
     Indication: Prophylaxis
     Route: 042
     Dates: start: 20241112, end: 20241112
  30. DEXAMETHASONE SODIUM PHOSPHATE [Concomitant]
     Active Substance: DEXAMETHASONE SODIUM PHOSPHATE
     Route: 042
     Dates: start: 20241023, end: 20241023
  31. DEXAMETHASONE SODIUM PHOSPHATE [Concomitant]
     Active Substance: DEXAMETHASONE SODIUM PHOSPHATE
     Route: 042
     Dates: start: 20241218, end: 20241218
  32. DEXAMETHASONE SODIUM PHOSPHATE [Concomitant]
     Active Substance: DEXAMETHASONE SODIUM PHOSPHATE
     Route: 042
     Dates: start: 20250107, end: 20250107
  33. CIMETIDINE [Concomitant]
     Active Substance: CIMETIDINE
     Indication: Prophylaxis
     Route: 042
     Dates: start: 20240930, end: 20240930
  34. CIMETIDINE [Concomitant]
     Active Substance: CIMETIDINE
     Route: 042
     Dates: start: 20241023, end: 20241023
  35. DIPHENHYDRAMINE [Concomitant]
     Active Substance: DIPHENHYDRAMINE
     Indication: Prophylaxis
     Route: 030
     Dates: start: 20241112, end: 20241112
  36. DIPHENHYDRAMINE [Concomitant]
     Active Substance: DIPHENHYDRAMINE
     Route: 030
     Dates: start: 20241023, end: 20241023
  37. DIPHENHYDRAMINE [Concomitant]
     Active Substance: DIPHENHYDRAMINE
     Route: 030
     Dates: start: 20241218, end: 20241218
  38. Ondansetron Oral Soluble Film [Concomitant]
     Indication: Prophylaxis
     Route: 048
     Dates: start: 20240930, end: 20241005
  39. Live Combined Bifidobacterium and Lactobacillus Tablets [Concomitant]
     Route: 048
     Dates: start: 20240930, end: 20241005
  40. LIDOCAINE HYDROCHLORIDE [Concomitant]
     Active Substance: LIDOCAINE HYDROCHLORIDE
     Indication: Local anaesthesia
     Route: 050
     Dates: start: 20241112, end: 20241112
  41. LIDOCAINE HYDROCHLORIDE [Concomitant]
     Active Substance: LIDOCAINE HYDROCHLORIDE
     Dates: start: 20241023, end: 20241023
  42. MECAPEGFILGRASTIM [Concomitant]
     Active Substance: MECAPEGFILGRASTIM
     Indication: Prophylaxis
     Route: 058
     Dates: start: 20241114, end: 20241114
  43. MECAPEGFILGRASTIM [Concomitant]
     Active Substance: MECAPEGFILGRASTIM
     Route: 055
     Dates: start: 20241025, end: 20241025
  44. INSULIN NOS [Concomitant]
     Active Substance: INSULIN NOS
     Route: 042
     Dates: start: 20241122, end: 20241122
  45. potassium chloride extended-release tablets [Concomitant]
     Route: 048
     Dates: start: 20241122, end: 20241128
  46. potassium chloride extended-release tablets [Concomitant]
     Dosage: POTASSIUM SUPPLEMENT
     Route: 048
     Dates: start: 20241112, end: 20241114
  47. GRANULOCYTE COLONY-STIMULATING FACTOR NOS [Concomitant]
     Active Substance: GRANULOCYTE COLONY-STIMULATING FACTOR NOS
     Route: 055
     Dates: start: 20241122, end: 20241126
  48. GRANULOCYTE COLONY-STIMULATING FACTOR NOS [Concomitant]
     Active Substance: GRANULOCYTE COLONY-STIMULATING FACTOR NOS
     Route: 055
     Dates: start: 20241121, end: 20241122
  49. RECOMBINANT HUMAN THROMBOPOIETIN [Concomitant]
     Active Substance: RECOMBINANT HUMAN THROMBOPOIETIN
     Dosage: MEDICATION DOSE 7500 OTHER?OTHER DOSE UNIT: UNIT
     Route: 055
     Dates: start: 20241123, end: 20241129
  50. EUTHYROX [Concomitant]
     Active Substance: LEVOTHYROXINE SODIUM
     Dosage: DOSE: 0.5 TABLET
     Route: 048
     Dates: start: 2023

REACTIONS (16)
  - White blood cell count decreased [Recovered/Resolved]
  - Neutrophil count decreased [Recovered/Resolved]
  - Lymphocyte count decreased [Recovered/Resolved]
  - Platelet count decreased [Not Recovered/Not Resolved]
  - Hypomagnesaemia [Recovered/Resolved]
  - Hyponatraemia [Not Recovered/Not Resolved]
  - Hypocalcaemia [Recovered/Resolved]
  - Globulins decreased [Not Recovered/Not Resolved]
  - Hyperuricaemia [Not Recovered/Not Resolved]
  - Hypokalaemia [Recovered/Resolved]
  - Hypochloraemia [Recovered/Resolved]
  - Hyperphosphataemia [Not Recovered/Not Resolved]
  - Blood cholinesterase decreased [Recovered/Resolved]
  - Hyperglycaemia [Recovered/Resolved]
  - Protein total decreased [Not Recovered/Not Resolved]
  - Hypoproteinaemia [Not Recovered/Not Resolved]

NARRATIVE: CASE EVENT DATE: 20241112
